FAERS Safety Report 9819541 (Version 2)
Quarter: 2014Q1

REPORT INFORMATION
  Report Type: Spontaneous
  Country: ZA (occurrence: ZA)
  Receive Date: 20140115
  Receipt Date: 20140122
  Transmission Date: 20141002
  Serious: Yes (Hospitalization, Other)
  Sender: FDA-Public Use
  Company Number: ZA-PFIZER INC-2014011670

PATIENT
  Age: 52 Year
  Sex: Female

DRUGS (2)
  1. PHENYTOIN [Suspect]
     Indication: POST-TRAUMATIC EPILEPSY
     Dosage: 300 MG, DAILY
     Route: 048
  2. PHENYTOIN [Suspect]
     Dosage: 200 MG, DAILY
     Route: 048

REACTIONS (18)
  - Accidental overdose [Recovered/Resolved]
  - Toxicity to various agents [Recovered/Resolved]
  - Anticonvulsant drug level increased [Recovered/Resolved]
  - Hemiparesis [Recovered/Resolved]
  - VIIth nerve paralysis [Recovered/Resolved]
  - Nervous system disorder [Recovered/Resolved]
  - Ataxia [Recovered/Resolved]
  - Headache [Recovered/Resolved]
  - Confusional state [Recovered/Resolved]
  - Disorientation [Recovered/Resolved]
  - Nystagmus [Recovered/Resolved]
  - Head titubation [Recovered/Resolved]
  - Tremor [Recovered/Resolved]
  - Dysarthria [Recovered/Resolved]
  - Hyperreflexia [Recovered/Resolved]
  - Extensor plantar response [Recovered/Resolved]
  - Hoffmann^s sign [Recovered/Resolved]
  - Areflexia [Recovered/Resolved]
